FAERS Safety Report 9660724 (Version 1)
Quarter: 2013Q4

REPORT INFORMATION
  Report Type: Spontaneous
  Country: BR (occurrence: BR)
  Receive Date: 20131031
  Receipt Date: 20131031
  Transmission Date: 20140711
  Serious: Yes (Other)
  Sender: FDA-Public Use
  Company Number: BR-PFIZER INC-2013308273

PATIENT
  Sex: Female

DRUGS (1)
  1. EFEXOR XR [Suspect]
     Indication: DEATH OF RELATIVE
     Dosage: 75 MG (TWO TABLETS OF 37.5MG) DAILY
     Dates: start: 2010

REACTIONS (2)
  - Kidney infection [Unknown]
  - Agitation [Unknown]
